FAERS Safety Report 13087401 (Version 1)
Quarter: 2017Q1

REPORT INFORMATION
  Report Type: Spontaneous
  Country: US (occurrence: US)
  Receive Date: 20170105
  Receipt Date: 20170105
  Transmission Date: 20170428
  Serious: No
  Sender: FDA-Public Use
  Company Number: US-ASTRAZENECA-2017SE00697

PATIENT
  Sex: Female

DRUGS (1)
  1. NEXIUM [Suspect]
     Active Substance: ESOMEPRAZOLE MAGNESIUM
     Indication: STRESS ULCER
     Dosage: 40MG ONE CAPSULE BY MOUTH DAILY
     Route: 048
     Dates: start: 2001

REACTIONS (2)
  - Product use issue [Unknown]
  - Pain [Unknown]
